FAERS Safety Report 4289857-5 (Version None)
Quarter: 2004Q1

REPORT INFORMATION
  Report Type: 
  Country: None (occurrence: None)
  Receive Date: 20040206
  Receipt Date: 20040129
  Transmission Date: 20041129
  Serious: Yes (Life-Threatening)
  Sender: FDA-Public Use
  Company Number: 200410016BYL

PATIENT
  Age: 86 Year
  Sex: Female

DRUGS (10)
  1. ASPIRIN [Suspect]
     Indication: CEREBRAL INFARCTION
     Dosage: 100 MG, QD, ORAL
     Route: 048
     Dates: start: 20031025, end: 20031202
  2. GASTER [Concomitant]
  3. ALEVIATIN [Concomitant]
  4. HEPARIN [Concomitant]
  5. RADICUT [Concomitant]
  6. GLYCEOL [Concomitant]
  7. SIGMART [Concomitant]
  8. SILECE [Concomitant]
  9. CEROCRAL [Concomitant]
  10. CYANOCOBALAMIN [Concomitant]

REACTIONS (2)
  - PURPURA [None]
  - THROMBOCYTOPENIA [None]
